FAERS Safety Report 9855024 (Version 1)
Quarter: 2013Q4

REPORT INFORMATION
  Report Type: Spontaneous
  Country: US (occurrence: None)
  Receive Date: 20131226
  Receipt Date: 20131226
  Transmission Date: 20140711
  Serious: Yes (Life-Threatening)
  Sender: FDA-Public Use
  Company Number: PHEH2013US015701

PATIENT
  Age: 44 Year
  Sex: Female

DRUGS (10)
  1. AFINITOR (RAD) UNKNOWN [Suspect]
     Indication: BREAST CANCER METASTATIC
     Route: 048
     Dates: start: 20130522, end: 20130605
  2. METHADONE (METHADONE) [Concomitant]
  3. HYDROMORPHINE (HYDROMORPHONE) [Concomitant]
  4. DURAGESIC (FENTANYL) [Concomitant]
  5. CLONAZEPAM (CLONAZEPAM) [Concomitant]
  6. MAGNESIUM (MAGNESIUM) [Concomitant]
  7. VITAMIN D3 (COLECALCIFEROL) [Concomitant]
  8. ARIMIDEX (ANASTROZOLE) [Concomitant]
  9. HERCEPTIN (TRASTUZUMAB) [Concomitant]
  10. FOSAMAX (ALENDRONATE SODIUM) [Concomitant]

REACTIONS (4)
  - Pneumonitis [None]
  - Dyspnoea [None]
  - Cough [None]
  - Hypoxia [None]
